FAERS Safety Report 5218338-7 (Version None)
Quarter: 2007Q1

REPORT INFORMATION
  Report Type: 
  Country: None (occurrence: None)
  Receive Date: 20070119
  Receipt Date: 20070111
  Transmission Date: 20070707
  Serious: Yes (Life-Threatening, Hospitalization)
  Sender: FDA-Public Use
  Company Number: 2007AL000160

PATIENT
  Age: 74 Year
  Sex: Male

DRUGS (3)
  1. METFORMIN HCL [Suspect]
     Dosage: 500 MG; QD; PO
     Route: 048
     Dates: end: 20061219
  2. MULTI-VITAMIN [Concomitant]
  3. SAW PALMETTO [Concomitant]

REACTIONS (2)
  - LACTIC ACIDOSIS [None]
  - PNEUMONIA [None]
